FAERS Safety Report 7915200-3 (Version None)
Quarter: 2011Q4

REPORT INFORMATION
  Report Type: 
  Country: None (occurrence: None)
  Receive Date: 20111115
  Receipt Date: 20111114
  Transmission Date: 20120403
  Serious: Yes (Other)
  Sender: FDA-Public Use
  Company Number: US-PFIZER INC-2011216747

PATIENT
  Sex: Male

DRUGS (5)
  1. CHANTIX [Suspect]
     Indication: SMOKING CESSATION THERAPY
     Dosage: UNK
     Route: 048
     Dates: start: 20100907, end: 20101217
  2. CLONIDINE [Concomitant]
     Dosage: 0.1 MG, UNK, 98 DEGREE AS NEEDED
  3. LUNESTA [Concomitant]
     Indication: SLEEP DISORDER
     Dosage: UNK
  4. CHANTIX [Suspect]
     Dosage: UNK
     Route: 048
     Dates: start: 20110101, end: 20110822
  5. XANAX [Concomitant]
     Indication: ANXIETY
     Dosage: UNK

REACTIONS (4)
  - GENERALISED ANXIETY DISORDER [None]
  - INSOMNIA [None]
  - DEPRESSION [None]
  - RESTLESS LEGS SYNDROME [None]
